FAERS Safety Report 6234944-5 (Version None)
Quarter: 2009Q2

REPORT INFORMATION
  Report Type: 
  Country: None (occurrence: None)
  Receive Date: 20090618
  Receipt Date: 20090610
  Transmission Date: 20091009
  Serious: Yes (Hospitalization)
  Sender: FDA-Public Use
  Company Number: B0577208A

PATIENT
  Age: 76 Year
  Sex: Male
  Weight: 54 kg

DRUGS (10)
  1. PREDNISOLONE [Suspect]
     Indication: ASTHMA
  2. FLUTICASONE [Suspect]
     Dosage: 800UG PER DAY
  3. SALMETEROL [Concomitant]
     Dosage: 100UL PER DAY
  4. TIOTROPIUM [Concomitant]
     Dosage: 18UG PER DAY
  5. THEOPHYLLINE [Concomitant]
     Dosage: 400MG PER DAY
  6. PRANLUKAST [Concomitant]
     Dosage: 450MG PER DAY
  7. CEFOTIAM [Concomitant]
  8. CEFPODOXIME PROXETIL [Concomitant]
  9. CEFEPIME [Concomitant]
  10. METHYLPREDNISOLONE ACETATE [Concomitant]

REACTIONS (2)
  - NOCARDIOSIS [None]
  - WHITE BLOOD CELL COUNT INCREASED [None]
